FAERS Safety Report 20946251 (Version 1)
Quarter: 2022Q2

REPORT INFORMATION
  Report Type: Spontaneous
  Country: US (occurrence: US)
  Receive Date: 20220610
  Receipt Date: 20220610
  Transmission Date: 20220721
  Serious: Yes (Other)
  Sender: FDA-Public Use
  Company Number: US-BRISTOL-MYERS SQUIBB COMPANY-2022-041377

PATIENT
  Age: 50 Year
  Sex: Female

DRUGS (9)
  1. REVLIMID [Suspect]
     Active Substance: LENALIDOMIDE
     Indication: Plasma cell myeloma
     Route: 048
     Dates: start: 20201204
  2. FLUCONAZOLE [Concomitant]
     Active Substance: FLUCONAZOLE
  3. FLUCONAZOLE [Concomitant]
     Active Substance: FLUCONAZOLE
  4. DEXAMETHASONE [Concomitant]
     Active Substance: DEXAMETHASONE
  5. KLOR-CON M20 [Concomitant]
     Active Substance: POTASSIUM CHLORIDE
  6. LIDOCAINE\PRILOCAINE HYDROCHLORIDE [Concomitant]
     Active Substance: LIDOCAINE\PRILOCAINE HYDROCHLORIDE
     Dosage: 2.5-2.5%
  7. MONTELUKAST SODIUM [Concomitant]
     Active Substance: MONTELUKAST SODIUM
  8. PANTOPRAZOLE [Concomitant]
     Active Substance: PANTOPRAZOLE
  9. PROCHLORPERAZINE [Concomitant]
     Active Substance: PROCHLORPERAZINE

REACTIONS (1)
  - Malignant neoplasm progression [Unknown]
